FAERS Safety Report 7117930-2 (Version None)
Quarter: 2010Q4

REPORT INFORMATION
  Report Type: 
  Country: None (occurrence: None)
  Receive Date: 20101123
  Receipt Date: 20101118
  Transmission Date: 20110411
  Serious: Yes (Hospitalization)
  Sender: FDA-Public Use
  Company Number: US-CEPHALON-2010006034

PATIENT
  Sex: Male
  Weight: 98 kg

DRUGS (4)
  1. TREANDA [Suspect]
     Indication: LYMPHOMA
     Route: 042
     Dates: start: 20101020
  2. RITUXAN [Suspect]
     Indication: LYMPHOMA
     Route: 042
  3. FLONASE [Concomitant]
     Dates: start: 20100901
  4. ZYRTEC [Concomitant]
     Dates: start: 20100901

REACTIONS (3)
  - INTESTINAL OBSTRUCTION [None]
  - PYREXIA [None]
  - RASH ERYTHEMATOUS [None]
